FAERS Safety Report 5755172-3 (Version None)
Quarter: 2008Q2

REPORT INFORMATION
  Report Type: 
  Country: None (occurrence: None)
  Receive Date: 20080528
  Receipt Date: 20080520
  Transmission Date: 20081010
  Serious: Yes (Death)
  Sender: FDA-Public Use
  Company Number: 163-21880-08011667

PATIENT
  Age: 76 Year
  Sex: Female

DRUGS (7)
  1. REVLIMID [Suspect]
     Indication: MYELODYSPLASTIC SYNDROME
     Dosage: 5 MG, DAILY, ORAL, 10 MG, DAILY, ORAL
     Route: 048
     Dates: start: 20061115, end: 20071101
  2. REVLIMID [Suspect]
     Indication: MYELODYSPLASTIC SYNDROME
     Dosage: 5 MG, DAILY, ORAL, 10 MG, DAILY, ORAL
     Route: 048
     Dates: start: 20071201
  3. TOPROL-XL [Concomitant]
  4. SYNTHROID [Concomitant]
  5. NEXIUM [Concomitant]
  6. CALCITONIN (CALCITONIN) [Concomitant]
  7. BENICAR [Concomitant]

REACTIONS (3)
  - ACUTE LEUKAEMIA [None]
  - HAEMOGLOBIN DECREASED [None]
  - NEUTROPENIA [None]
